FAERS Safety Report 16239670 (Version 2)
Quarter: 2019Q2

REPORT INFORMATION
  Report Type: Report from Study
  Country: FR (occurrence: FR)
  Receive Date: 20190425
  Receipt Date: 20190430
  Transmission Date: 20190711
  Serious: Yes (Other)
  Sender: FDA-Public Use
  Company Number: PHHY2019FR058362

PATIENT
  Sex: Female
  Weight: 50 kg

DRUGS (1)
  1. VOTRIENT [Suspect]
     Active Substance: PAZOPANIB HYDROCHLORIDE
     Indication: RENAL CANCER METASTATIC
     Dosage: 400 MG, QD
     Route: 048
     Dates: start: 20190108, end: 20190228

REACTIONS (12)
  - Atrial fibrillation [Unknown]
  - Malaise [Unknown]
  - Vomiting [Recovered/Resolved]
  - Thrombocytopenia [Recovered/Resolved]
  - Tachycardia [Unknown]
  - Left ventricular dysfunction [Recovering/Resolving]
  - Stomatitis [Recovered/Resolved]
  - Cardiomyopathy [Recovering/Resolving]
  - Hyponatraemia [Recovered/Resolved]
  - Tachyarrhythmia [Unknown]
  - Hyperkalaemia [Recovered/Resolved]
  - Constipation [Recovered/Resolved]

NARRATIVE: CASE EVENT DATE: 20190122
